FAERS Safety Report 7979911-6 (Version None)
Quarter: 2011Q4

REPORT INFORMATION
  Report Type: 
  Country: None (occurrence: None)
  Receive Date: 20111214
  Receipt Date: 20111124
  Transmission Date: 20120403
  Serious: Yes (Hospitalization)
  Sender: FDA-Public Use
  Company Number: NL-ROCHE-1010128

PATIENT
  Sex: Female
  Weight: 42 kg

DRUGS (15)
  1. VINCRISTINE [Suspect]
     Indication: DIFFUSE LARGE B-CELL LYMPHOMA
     Dosage: LAST DOSE: 18-OCT 2011
     Route: 042
     Dates: start: 20111018
  2. CARBASPIRIN CALCIUM [Suspect]
     Indication: TRANSIENT ISCHAEMIC ATTACK
     Dosage: DATE OF LAST DOSE PRIOR TO SAE: 23 OCT 2011
     Route: 048
     Dates: start: 20000101
  3. FILGRASTIM [Suspect]
     Indication: DIFFUSE LARGE B-CELL LYMPHOMA
     Dosage: LAST DOSE: 19-OCT-2011
     Route: 058
     Dates: start: 20111019
  4. ESOMEPRAZOLE MAGNESIUM [Concomitant]
     Indication: GASTRITIS
     Dosage: DATE OF LAST DOSE PRIOR TO SAE ON 23 OCT 2011
     Route: 048
     Dates: start: 20090101
  5. PREDNISONE [Suspect]
     Dosage: LAST DOSE: 24 OCT 2011
     Route: 048
     Dates: start: 20111024
  6. VALACICLOVIR [Concomitant]
     Indication: PROPHYLAXIS
     Dosage: DATE OF LAST DOSE PRIOR TO SAE: 23 OCT 2011
     Route: 048
     Dates: start: 20110901
  7. MABTHERA [Suspect]
     Indication: DIFFUSE LARGE B-CELL LYMPHOMA
     Dosage: LAST DOSE PRIOR TO SAE: 18 OCT 2011
     Route: 042
     Dates: start: 20111018
  8. PREDNISONE [Suspect]
     Dosage: LAST DOSE: 23 OCT 2011
     Route: 048
     Dates: start: 20111023
  9. COTRIM [Concomitant]
     Indication: PROPHYLAXIS
     Dosage: DATE OF LAST DOSE PRIOR TO SAE: 23 OCT 2011
     Route: 048
     Dates: start: 20110901
  10. INSULIN NOVOMIX [Concomitant]
     Indication: DIABETES MELLITUS
     Dosage: DATE OF LAST DOSE PRIOR TO SAE: 23 OCT 2011
     Route: 058
     Dates: start: 20110923
  11. DOXORUBICIN HCL [Suspect]
     Indication: DIFFUSE LARGE B-CELL LYMPHOMA
     Dosage: LAST DOSE: 18-OCT-2011
     Route: 042
     Dates: start: 20111018
  12. PREDNISONE [Suspect]
     Indication: DIFFUSE LARGE B-CELL LYMPHOMA
     Dosage: LAST DOSE: 21 OCT 2011
     Route: 048
     Dates: start: 20111018
  13. PREDNISONE [Suspect]
     Dosage: LAST DOSE: 22 OCT 2011
     Route: 048
     Dates: start: 20111022
  14. METFORMIN HCL [Concomitant]
     Indication: DIABETES MELLITUS
     Dosage: DATE OF LAST DOSE PRIOR TO SAE: 23 OCT 2011
     Route: 048
     Dates: start: 20110908
  15. CYCLOPHOSPHAMIDE [Suspect]
     Indication: DIFFUSE LARGE B-CELL LYMPHOMA
     Dosage: LAST DOSE: 18 OCT 2011
     Route: 042
     Dates: start: 20111018

REACTIONS (2)
  - HAEMORRHOIDS [None]
  - ANAEMIA [None]
